FAERS Safety Report 8425414-4 (Version None)
Quarter: 2012Q2

REPORT INFORMATION
  Report Type: 
  Country: None (occurrence: None)
  Receive Date: 20120605
  Receipt Date: 20120605
  Transmission Date: 20120825
  Serious: Yes (Other)
  Sender: FDA-Public Use
  Company Number: None

PATIENT
  Sex: Female

DRUGS (1)
  1. REMBRANDT 2-HOUR WHITE KIT [Suspect]
     Indication: DENTAL COSMETIC PROCEDURE
     Dosage: DENTAL
     Route: 004

REACTIONS (6)
  - GINGIVAL PAIN [None]
  - GINGIVAL BLISTER [None]
  - GINGIVAL SWELLING [None]
  - SPEECH DISORDER [None]
  - APHAGIA [None]
  - SENSITIVITY OF TEETH [None]
